FAERS Safety Report 4548287-9 (Version None)
Quarter: 2005Q1

REPORT INFORMATION
  Report Type: 
  Country: None (occurrence: None)
  Receive Date: 20050106
  Receipt Date: 20050106
  Transmission Date: 20050727
  Serious: No
  Sender: FDA-Public Use
  Company Number: None

PATIENT
  Age: 66 Year
  Sex: Male
  Weight: 90 kg

DRUGS (6)
  1. IRBESARTAN [Suspect]
     Indication: HYPERTENSION
     Dosage: 300MG  PO QD
     Route: 048
     Dates: start: 20041014, end: 20041016
  2. ALLOPURINOL [Concomitant]
  3. ENALAPRIL MALEATE [Concomitant]
  4. FELODIPINE [Concomitant]
  5. INDOMETHACIN [Concomitant]
  6. VARDENAFIL HCL [Concomitant]

REACTIONS (3)
  - DIZZINESS [None]
  - SWELLING FACE [None]
  - SWOLLEN TONGUE [None]
